FAERS Safety Report 8307271-X (Version None)
Quarter: 2012Q2

REPORT INFORMATION
  Report Type: 
  Country: None (occurrence: None)
  Receive Date: 20120424
  Receipt Date: 20120417
  Transmission Date: 20120825
  Serious: No
  Sender: FDA-Public Use
  Company Number: US-BAYER-2012-036540

PATIENT
  Age: 71 Year
  Sex: Female
  Weight: 97 kg

DRUGS (3)
  1. ATENOLOL [Concomitant]
  2. ORAL BLOOD GLUCOSE LOWERING DRUGS [Concomitant]
     Indication: DIABETES MELLITUS
  3. ALEVE (CAPLET) [Suspect]
     Dosage: 2 DF, ONCE
     Route: 048
     Dates: start: 20120412

REACTIONS (8)
  - PRURITUS [None]
  - PERIORBITAL HAEMATOMA [None]
  - FACIAL PAIN [None]
  - SWELLING FACE [None]
  - ERYTHEMA [None]
  - EYE SWELLING [None]
  - DRY SKIN [None]
  - HYPERSENSITIVITY [None]
